FAERS Safety Report 14544241 (Version 2)
Quarter: 2018Q1

REPORT INFORMATION
  Report Type: Spontaneous
  Country: FR (occurrence: FR)
  Receive Date: 20180216
  Receipt Date: 20180227
  Transmission Date: 20180509
  Serious: Yes (Other)
  Sender: FDA-Public Use
  Company Number: FR-LPDUSPRD-20180168

PATIENT
  Age: 87 Year
  Sex: Female

DRUGS (1)
  1. FERINJECT [Suspect]
     Active Substance: FERRIC CARBOXYMALTOSE
     Dosage: 1 DOSAGE FORMS,1 TOTAL
     Route: 042
     Dates: start: 20171226, end: 20171226

REACTIONS (2)
  - Pigmentation disorder [Unknown]
  - Administration site extravasation [Unknown]

NARRATIVE: CASE EVENT DATE: 20171226
